FAERS Safety Report 14404440 (Version 3)
Quarter: 2018Q1

REPORT INFORMATION
  Report Type: Spontaneous
  Country: JP (occurrence: JP)
  Receive Date: 20180117
  Receipt Date: 20180319
  Transmission Date: 20180509
  Serious: Yes (Death)
  Sender: FDA-Public Use
  Company Number: JP-AMGEN-JPNSP2017174361

PATIENT
  Age: 8 Decade
  Sex: Male
  Weight: 63 kg

DRUGS (20)
  1. CETUXIMAB. [Concomitant]
     Active Substance: CETUXIMAB
     Indication: CHEMOTHERAPY
     Dosage: 670 MG, UNK
     Route: 041
     Dates: start: 20160720
  2. G-LASTA [Suspect]
     Active Substance: PEGFILGRASTIM
     Indication: COLONY STIMULATING FACTOR PROPHYLAXIS
     Dosage: 3.6 MG, UNK
     Route: 058
     Dates: start: 20170909, end: 20170909
  3. DOCETAXEL. [Suspect]
     Active Substance: DOCETAXEL
     Dosage: 115 MG, UNK
     Route: 041
     Dates: start: 20171130, end: 20171130
  4. CETUXIMAB. [Concomitant]
     Active Substance: CETUXIMAB
     Dosage: 410 MG, QWK
     Route: 041
     Dates: start: 20170630, end: 20170728
  5. G-LASTA [Suspect]
     Active Substance: PEGFILGRASTIM
     Dosage: 3.6 MG, UNK
     Route: 058
     Dates: start: 20171021, end: 20171021
  6. DOCETAXEL. [Suspect]
     Active Substance: DOCETAXEL
     Dosage: 115 MG, UNK
     Route: 041
     Dates: start: 20171019, end: 20171019
  7. CETUXIMAB. [Concomitant]
     Active Substance: CETUXIMAB
     Dosage: 420 MG, QWK
     Route: 041
     Dates: start: 20160728, end: 20170613
  8. DOCETAXEL. [Suspect]
     Active Substance: DOCETAXEL
     Indication: CHEMOTHERAPY
     Dosage: 115 MG, UNK
     Route: 041
     Dates: start: 20170804, end: 20170804
  9. DOCETAXEL. [Suspect]
     Active Substance: DOCETAXEL
     Dosage: 115 MG, UNK
     Route: 041
     Dates: start: 20170907, end: 20170907
  10. DOCETAXEL. [Suspect]
     Active Substance: DOCETAXEL
     Dosage: 115 MG, UNK
     Route: 041
     Dates: start: 20171221, end: 20171221
  11. NEU-UP [Concomitant]
     Active Substance: UNSPECIFIED INGREDIENT
     Indication: COLONY STIMULATING FACTOR THERAPY
     Dosage: 50 MUG, UNK
     Route: 065
     Dates: start: 20170810, end: 20170810
  12. NEU-UP [Concomitant]
     Active Substance: UNSPECIFIED INGREDIENT
     Dosage: 50 MUG, UNK
     Route: 058
     Dates: start: 20170810, end: 20170814
  13. CISPLATIN. [Concomitant]
     Active Substance: CISPLATIN
     Dosage: 110 MG, QD
     Route: 041
     Dates: end: 20160607
  14. G-LASTA [Suspect]
     Active Substance: PEGFILGRASTIM
     Dosage: 3.6 MG, UNK
     Route: 058
     Dates: start: 20170930, end: 20170930
  15. DOCETAXEL. [Suspect]
     Active Substance: DOCETAXEL
     Dosage: 115 MG, UNK
     Route: 041
     Dates: start: 20171109, end: 20171109
  16. G-LASTA [Suspect]
     Active Substance: PEGFILGRASTIM
     Dosage: 3.6 MG, UNK
     Route: 058
     Dates: start: 20171111, end: 20171111
  17. DOCETAXEL. [Suspect]
     Active Substance: DOCETAXEL
     Dosage: 115 MG, UNK
     Route: 041
     Dates: start: 20170928, end: 20170928
  18. CISPLATIN. [Concomitant]
     Active Substance: CISPLATIN
     Indication: CHEMOTHERAPY
     Dosage: 120 MG, QD
     Route: 041
     Dates: start: 20160420
  19. 5-FU                               /00098801/ [Concomitant]
     Active Substance: FLUOROURACIL
     Indication: CHEMOTHERAPY
     Dosage: 1000 MG, UNK
     Route: 041
     Dates: start: 20160720, end: 20170616
  20. CISPLATIN. [Concomitant]
     Active Substance: CISPLATIN
     Dosage: 120 MG, UNK
     Route: 041
     Dates: start: 20160720, end: 20170613

REACTIONS (3)
  - White blood cell count increased [Not Recovered/Not Resolved]
  - Tracheal haemorrhage [Fatal]
  - Eosinophil count increased [Not Recovered/Not Resolved]

NARRATIVE: CASE EVENT DATE: 20170928
